FAERS Safety Report 7049318-7 (Version None)
Quarter: 2010Q4

REPORT INFORMATION
  Report Type: 
  Country: None (occurrence: None)
  Receive Date: 20101018
  Receipt Date: 20091109
  Transmission Date: 20110411
  Serious: No
  Sender: FDA-Public Use
  Company Number: A0816090A

PATIENT
  Age: 67 Year
  Sex: Female

DRUGS (5)
  1. CEFTIN [Suspect]
     Route: 048
     Dates: start: 20060101, end: 20060101
  2. LOVAZA [Suspect]
     Dosage: 1G PER DAY
     Route: 048
     Dates: start: 20070101
  3. SYNTHROID [Concomitant]
  4. ATENOLOL [Concomitant]
  5. ESTROGEN CREAM [Concomitant]

REACTIONS (3)
  - EYE SWELLING [None]
  - SWELLING FACE [None]
  - THERAPEUTIC RESPONSE UNEXPECTED [None]
